FAERS Safety Report 8825938 (Version 2)
Quarter: 2015Q2

REPORT INFORMATION
  Report Type: Report from Study
  Country: US (occurrence: US)
  Receive Date: 20121005
  Receipt Date: 20150622
  Transmission Date: 20150821
  Serious: Yes (Death)
  Sender: FDA-Public Use
  Company Number: US-ROCHE-1130200

PATIENT
  Sex: Male

DRUGS (9)
  1. RITUXAN [Suspect]
     Active Substance: RITUXIMAB
     Indication: HEPATIC CANCER
  2. AVASTIN [Suspect]
     Active Substance: BEVACIZUMAB
     Indication: LYMPHOMA
     Route: 042
  3. GEMZAR [Concomitant]
     Active Substance: GEMCITABINE HYDROCHLORIDE
  4. AVASTIN [Suspect]
     Active Substance: BEVACIZUMAB
     Indication: HEPATIC CANCER
     Route: 042
     Dates: start: 20061205
  5. RITUXAN [Suspect]
     Active Substance: RITUXIMAB
     Indication: B-CELL LYMPHOMA
  6. RITUXAN [Suspect]
     Active Substance: RITUXIMAB
     Indication: MALIGNANT LYMPHOID NEOPLASM
     Dosage: 20-MAY-2005, 20-JUN-2005, 15-JUL-2005, 04-AUG-2005, 26-AUG-2005, 16-SEP-2005, 17-OCT-2005, 08-NOV-20
     Route: 042
  7. CISPLATIN. [Concomitant]
     Active Substance: CISPLATIN
  8. CYTOXAN [Concomitant]
     Active Substance: CYCLOPHOSPHAMIDE
  9. AVASTIN [Suspect]
     Active Substance: BEVACIZUMAB
     Indication: COLON CANCER

REACTIONS (2)
  - Off label use [Unknown]
  - Death [Fatal]
